FAERS Safety Report 9185908 (Version 3)
Quarter: 2013Q2

REPORT INFORMATION
  Report Type: Spontaneous
  Country: JP (occurrence: JP)
  Receive Date: 20130325
  Receipt Date: 20130404
  Transmission Date: 20140414
  Serious: Yes (Other)
  Sender: FDA-Public Use
  Company Number: JP-UCBSA-081003

PATIENT
  Age: 61 Year
  Sex: Male
  Weight: 64 kg

DRUGS (3)
  1. XYZAL [Suspect]
     Indication: SEASONAL ALLERGY
     Route: 048
     Dates: start: 20130311, end: 20130311
  2. ALLERMIST [Suspect]
     Indication: SEASONAL ALLERGY
     Dosage: NDR
     Route: 045
     Dates: start: 20130311
  3. PATANOL [Suspect]
     Indication: SEASONAL ALLERGY
     Dosage: DRPP
     Route: 031
     Dates: start: 20130311

REACTIONS (6)
  - Loss of consciousness [Recovered/Resolved]
  - Drug eruption [Recovering/Resolving]
  - Head injury [Unknown]
  - Contusion [Unknown]
  - Fall [Unknown]
  - Oedema [Recovering/Resolving]
